FAERS Safety Report 7304852-7 (Version None)
Quarter: 2011Q1

REPORT INFORMATION
  Report Type: 
  Country: None (occurrence: None)
  Receive Date: 20110222
  Receipt Date: 20110216
  Transmission Date: 20110831
  Serious: No
  Sender: FDA-Public Use
  Company Number: US-PFIZER INC-2011035058

PATIENT

DRUGS (1)
  1. PHOSPHOLINE IODIDE [Suspect]
     Dosage: ONE DROP IN EACH EYE EVERY OTHER NIGHT FOR ONE WEEK

REACTIONS (1)
  - EYE IRRITATION [None]
